FAERS Safety Report 11289543 (Version 1)
Quarter: 2015Q3

REPORT INFORMATION
  Report Type: Report from Study
  Country: CA (occurrence: CA)
  Receive Date: 20150721
  Receipt Date: 20150721
  Transmission Date: 20151125
  Serious: Yes (Other)
  Sender: FDA-Public Use
  Company Number: CA-GLAXOSMITHKLINE-CA2015GSK064619

PATIENT
  Age: 79 Year
  Sex: Male

DRUGS (2)
  1. PAZOPANIB [Suspect]
     Active Substance: PAZOPANIB
     Indication: METASTATIC RENAL CELL CARCINOMA
     Dosage: 800 MG, QD
  2. PAZOPANIB [Suspect]
     Active Substance: PAZOPANIB
     Indication: ILL-DEFINED DISORDER
     Dosage: 600 MG, QD

REACTIONS (4)
  - Haemorrhage [Recovered/Resolved]
  - Cystitis [Unknown]
  - Pyrexia [Unknown]
  - Platelet count decreased [Recovered/Resolved]

NARRATIVE: CASE EVENT DATE: 20150510
